FAERS Safety Report 25900689 (Version 2)
Quarter: 2025Q4

REPORT INFORMATION
  Report Type: Spontaneous
  Country: BR (occurrence: BR)
  Receive Date: 20251009
  Receipt Date: 20251016
  Transmission Date: 20260118
  Serious: Yes (Other)
  Sender: NOVARTIS
  Company Number: BR-002147023-PHHY2019BR177455

PATIENT
  Age: 45 Year
  Sex: Female
  Weight: 77.4 kg

DRUGS (3)
  1. SANDOSTATIN LAR DEPOT [Suspect]
     Active Substance: OCTREOTIDE ACETATE
     Indication: Neuroendocrine tumour
     Dosage: 10 MG
     Route: 065
     Dates: start: 2013
  2. SANDOSTATIN LAR DEPOT [Suspect]
     Active Substance: OCTREOTIDE ACETATE
     Dosage: 20 MG
     Route: 065
  3. SANDOSTATIN LAR DEPOT [Suspect]
     Active Substance: OCTREOTIDE ACETATE
     Dosage: UNK UNK, QMO
     Route: 030
     Dates: start: 2013

REACTIONS (17)
  - Breast cancer [Recovering/Resolving]
  - Second primary malignancy [Unknown]
  - Product solubility abnormal [Unknown]
  - Liquid product physical issue [Unknown]
  - Injection site pain [Recovered/Resolved]
  - Injection site induration [Recovering/Resolving]
  - Injection site injury [Unknown]
  - Leiomyoma [Not Recovered/Not Resolved]
  - Heavy menstrual bleeding [Not Recovered/Not Resolved]
  - Blood growth hormone increased [Not Recovered/Not Resolved]
  - Injection site swelling [Recovering/Resolving]
  - Injection site erythema [Recovering/Resolving]
  - Injection site warmth [Recovering/Resolving]
  - Injection site mass [Recovering/Resolving]
  - Injection site pallor [Recovering/Resolving]
  - Injection site haemorrhage [Recovering/Resolving]
  - Injection site discolouration [Recovering/Resolving]

NARRATIVE: CASE EVENT DATE: 20190628
